FAERS Safety Report 10681618 (Version 1)
Quarter: 2014Q4

REPORT INFORMATION
  Report Type: Spontaneous
  Country: RU (occurrence: None)
  Receive Date: 20141224
  Receipt Date: 20141224
  Transmission Date: 20150529
  Serious: Yes (Other)
  Sender: FDA-Public Use
  Company Number: B1025490A

PATIENT
  Age: 38 Year
  Sex: Male

DRUGS (5)
  1. REYATAZ [Suspect]
     Active Substance: ATAZANAVIR SULFATE
     Indication: HIV INFECTION
     Dates: start: 20140721
  2. KIVEXA [Suspect]
     Active Substance: ABACAVIR SULFATE\LAMIVUDINE
     Indication: HIV INFECTION
     Dates: start: 20140721
  3. RITONAVIR (RITONAVIR) UNKNOWN [Suspect]
     Active Substance: RITONAVIR
     Indication: HIV INFECTION
     Dates: start: 20140721
  4. URBASON (METHYLPREDNISOLONE) [Concomitant]
  5. BISEPTOL (SULFAMETHOXAZOLE + TRIMETHOPRIM) [Concomitant]

REACTIONS (9)
  - Drug intolerance [None]
  - Polydipsia [None]
  - Laziness [None]
  - Yellow skin [None]
  - Lipodystrophy acquired [None]
  - Deformity [None]
  - Paraesthesia [None]
  - Ocular icterus [None]
  - Bilirubin conjugated increased [None]

NARRATIVE: CASE EVENT DATE: 201407
